APPROVED DRUG PRODUCT: QUINAPRIL HYDROCHLORIDE
Active Ingredient: QUINAPRIL HYDROCHLORIDE
Strength: EQ 40MG BASE
Dosage Form/Route: TABLET;ORAL
Application: A078457 | Product #004
Applicant: INVAGEN PHARMACEUTICALS INC
Approved: Aug 24, 2007 | RLD: No | RS: No | Type: DISCN